FAERS Safety Report 6398640-6 (Version None)
Quarter: 2009Q4

REPORT INFORMATION
  Report Type: 
  Country: None (occurrence: None)
  Receive Date: 20091013
  Receipt Date: 20091006
  Transmission Date: 20100525
  Serious: Yes (Other)
  Sender: FDA-Public Use
  Company Number: US-GENENTECH-291892

PATIENT
  Age: 36 Year
  Sex: Male

DRUGS (3)
  1. AVASTIN [Suspect]
     Indication: NON-SMALL CELL LUNG CANCER METASTATIC
     Dosage: UNK
  2. ALIMTA [Concomitant]
     Indication: NON-SMALL CELL LUNG CANCER METASTATIC
  3. CHEMOTHERAPY (UNK INGREDIENTS) [Concomitant]
     Indication: NON-SMALL CELL LUNG CANCER METASTATIC

REACTIONS (2)
  - TUBULOINTERSTITIAL NEPHRITIS [None]
  - VASCULITIS [None]
